APPROVED DRUG PRODUCT: TRIPROLIDINE AND PSEUDOEPHEDRINE
Active Ingredient: PSEUDOEPHEDRINE HYDROCHLORIDE; TRIPROLIDINE HYDROCHLORIDE
Strength: 60MG;2.5MG
Dosage Form/Route: TABLET;ORAL
Application: A088318 | Product #002
Applicant: WATSON LABORATORIES INC
Approved: Jan 13, 1984 | RLD: No | RS: No | Type: DISCN